FAERS Safety Report 8498150-6 (Version None)
Quarter: 2012Q3

REPORT INFORMATION
  Report Type: 
  Country: None (occurrence: None)
  Receive Date: 20120709
  Receipt Date: 20120620
  Transmission Date: 20120928
  Serious: No
  Sender: FDA-Public Use
  Company Number: US-AMGEN-KDL403013

PATIENT
  Age: 50 Year
  Sex: Female

DRUGS (4)
  1. PLAQUENIL [Concomitant]
     Dates: start: 20090501
  2. ENBREL [Suspect]
     Indication: RHEUMATOID ARTHRITIS
     Dosage: 50 MG, QWK
     Route: 058
     Dates: start: 20090701
  3. METHOTREXATE [Concomitant]
     Dosage: 15 MG, QWK
     Route: 048
     Dates: start: 20090501
  4. METHOTREXATE [Concomitant]
     Dates: start: 20090501

REACTIONS (5)
  - INJECTION SITE ERYTHEMA [None]
  - INJECTION SITE WARMTH [None]
  - MYALGIA [None]
  - INJECTION SITE PRURITUS [None]
  - INJECTION SITE SWELLING [None]
